FAERS Safety Report 15223106 (Version 4)
Quarter: 2019Q1

REPORT INFORMATION
  Report Type: Spontaneous
  Country: US (occurrence: US)
  Receive Date: 20180731
  Receipt Date: 20190318
  Transmission Date: 20190417
  Serious: Yes (Hospitalization, Other)
  Sender: FDA-Public Use
  Company Number: US-GLAXOSMITHKLINE-US2018134261

PATIENT
  Sex: Female

DRUGS (2)
  1. SORIATANE [Suspect]
     Active Substance: ACITRETIN
     Indication: PRODUCT USED FOR UNKNOWN INDICATION
     Dosage: 25 MG, UNK
  2. SORIATANE [Suspect]
     Active Substance: ACITRETIN
     Indication: KERATOSIS FOLLICULAR
     Dosage: 50 MG, UNK

REACTIONS (9)
  - Keratosis follicular [Not Recovered/Not Resolved]
  - Erythema [Unknown]
  - Ill-defined disorder [Unknown]
  - Condition aggravated [Unknown]
  - Anxiety [Unknown]
  - Skin erosion [Unknown]
  - Stress [Unknown]
  - Staphylococcal sepsis [Recovering/Resolving]
  - Intentional product use issue [Unknown]
